FAERS Safety Report 4482207-0 (Version None)
Quarter: 2004Q4

REPORT INFORMATION
  Report Type: 
  Country: None (occurrence: None)
  Receive Date: 20041019
  Receipt Date: 20041019
  Transmission Date: 20050328
  Serious: Yes (Hospitalization)
  Sender: FDA-Public Use
  Company Number: None

PATIENT
  Sex: Male

DRUGS (17)
  1. WARFARIN 5 MG [Suspect]
     Indication: MITRAL VALVE REPLACEMENT
     Dosage: 5 MG DAILY ORAL
     Route: 048
  2. LINEZOLID [Concomitant]
  3. OMEPRAZOLE [Concomitant]
  4. EPOGEN [Concomitant]
  5. MICONAZOLE TOPICAL [Concomitant]
  6. IPRATROPIUM BROMIDE [Concomitant]
  7. INSULIN [Concomitant]
  8. TEMAZEPAM [Concomitant]
  9. ALBUTEROL [Concomitant]
  10. MIRTAZAPINE [Concomitant]
  11. LACTOBACILLUS [Concomitant]
  12. GABAPENTIN [Concomitant]
  13. FERROUS SULFATE TAB [Concomitant]
  14. COMBIVENT [Concomitant]
  15. DOCUSATE [Concomitant]
  16. ENOXAPARIN SODIUM [Concomitant]
  17. NTG SL [Concomitant]

REACTIONS (3)
  - HAEMATOCRIT DECREASED [None]
  - HAEMOGLOBIN DECREASED [None]
  - MELAENA [None]
